FAERS Safety Report 25260163 (Version 1)
Quarter: 2025Q2

REPORT INFORMATION
  Report Type: Spontaneous
  Country: US (occurrence: None)
  Receive Date: 20250501
  Receipt Date: 20250501
  Transmission Date: 20250717
  Serious: Yes (Hospitalization)
  Sender: FDA-CTU
  Company Number: None

PATIENT
  Age: 77 Year
  Sex: Male
  Weight: 86 kg

DRUGS (1)
  1. APIXABAN [Suspect]
     Active Substance: APIXABAN
     Indication: Atrial fibrillation
     Dosage: FREQUENCY : TWICE A DAY;?
     Route: 048
     Dates: start: 20220311

REACTIONS (11)
  - Gastritis erosive [None]
  - Oesophagitis [None]
  - Gastric polyps [None]
  - Nausea [None]
  - Vomiting [None]
  - Rectal haemorrhage [None]
  - Anaemia [None]
  - Haematemesis [None]
  - Therapy interrupted [None]
  - Atrial flutter [None]
  - Tachycardia [None]

NARRATIVE: CASE EVENT DATE: 20241107
